FAERS Safety Report 21389372 (Version 1)
Quarter: 2022Q3

REPORT INFORMATION
  Report Type: Report from Study
  Country: NO (occurrence: NO)
  Receive Date: 20220929
  Receipt Date: 20220929
  Transmission Date: 20221027
  Serious: Yes (Other)
  Sender: FDA-Public Use
  Company Number: NO-JNJFOC-20220956392

PATIENT

DRUGS (6)
  1. REMICADE [Suspect]
     Active Substance: INFLIXIMAB
     Indication: Rheumatoid arthritis
     Route: 041
  2. REMICADE [Suspect]
     Active Substance: INFLIXIMAB
     Indication: Spondylitis
  3. REMICADE [Suspect]
     Active Substance: INFLIXIMAB
     Indication: Psoriatic arthropathy
  4. REMICADE [Suspect]
     Active Substance: INFLIXIMAB
     Indication: Colitis ulcerative
  5. REMICADE [Suspect]
     Active Substance: INFLIXIMAB
     Indication: Crohn^s disease
  6. REMICADE [Suspect]
     Active Substance: INFLIXIMAB
     Indication: Psoriasis

REACTIONS (13)
  - Appendicitis [Unknown]
  - Endocarditis [Unknown]
  - Pneumonia [Unknown]
  - Liver abscess [Unknown]
  - Bile duct stone [Unknown]
  - Fracture [Unknown]
  - Tonsillitis [Unknown]
  - Urinary tract infection [Unknown]
  - Herpes virus infection [Unknown]
  - Rash [Unknown]
  - Gastroenteritis [Unknown]
  - Upper respiratory tract infection [Unknown]
  - Infusion related reaction [Unknown]
